FAERS Safety Report 25575524 (Version 1)
Quarter: 2025Q3

REPORT INFORMATION
  Report Type: Spontaneous
  Country: TR (occurrence: TR)
  Receive Date: 20250718
  Receipt Date: 20250718
  Transmission Date: 20251020
  Serious: Yes (Death, Hospitalization, Other)
  Sender: Steriscience PTE
  Company Number: TR-STERISCIENCE B.V.-2025-ST-001329

PATIENT
  Age: 11 Year
  Sex: Female

DRUGS (8)
  1. MEROPENEM [Suspect]
     Active Substance: MEROPENEM
     Indication: Pneumonia pseudomonal
     Route: 065
  2. MEROPENEM [Suspect]
     Active Substance: MEROPENEM
     Indication: Enterobacter pneumonia
  3. FOSFOMYCIN [Suspect]
     Active Substance: FOSFOMYCIN
     Indication: Pneumonia pseudomonal
     Route: 042
  4. FOSFOMYCIN [Suspect]
     Active Substance: FOSFOMYCIN
     Indication: Enterobacter pneumonia
  5. COLISTIN [Suspect]
     Active Substance: COLISTIN
     Indication: Pneumonia pseudomonal
     Route: 065
  6. COLISTIN [Suspect]
     Active Substance: COLISTIN
     Indication: Enterobacter pneumonia
  7. GENTAMICIN [Suspect]
     Active Substance: GENTAMICIN
     Indication: Pneumonia pseudomonal
     Route: 065
  8. GENTAMICIN [Suspect]
     Active Substance: GENTAMICIN
     Indication: Enterobacter pneumonia

REACTIONS (1)
  - Drug ineffective [Fatal]
